FAERS Safety Report 10523821 (Version 1)
Quarter: 2014Q4

REPORT INFORMATION
  Report Type: Spontaneous
  Country: US (occurrence: None)
  Receive Date: 20141015
  Receipt Date: 20141015
  Transmission Date: 20150528
  Serious: No
  Sender: FDA-Public Use
  Company Number: None

PATIENT
  Age: 75 Year
  Sex: Female
  Weight: 140 kg

DRUGS (15)
  1. VITAMIN B12 [Concomitant]
     Active Substance: CYANOCOBALAMIN
  2. ALIVE WOMEN^S 50+ CRANBERRY SOFTGELS [Concomitant]
  3. DIAZEPAM. [Concomitant]
     Active Substance: DIAZEPAM
  4. ULTIMATE FIOXA SENIOR 30 BILLION [Concomitant]
  5. LEVOTHYROXINE [Concomitant]
     Active Substance: LEVOTHYROXINE
  6. STRESS B-COMPLEX [Concomitant]
  7. OMEPRAZOLE. [Suspect]
     Active Substance: OMEPRAZOLE
     Indication: HIATUS HERNIA
     Dosage: 20MG 1 CAP BID, 1 HOUR BEFORE BREAKFAST,1 HOUR BEFORE DINNER, MOUTH
     Route: 048
     Dates: start: 20140521, end: 201408
  8. CRESTOR [Concomitant]
     Active Substance: ROSUVASTATIN CALCIUM
  9. STOOL SOFTNER [Concomitant]
  10. VIT. D2 ERGOCAL [Concomitant]
  11. LARAY CAL-MG [Concomitant]
  12. ESTER-C [Concomitant]
     Active Substance: CALCIUM\VITAMINS
  13. PANTOPRANZOLE [Concomitant]
  14. TRAMADOL HCL [Concomitant]
     Active Substance: TRAMADOL HYDROCHLORIDE
  15. PROTONIX [Concomitant]
     Active Substance: PANTOPRAZOLE SODIUM

REACTIONS (2)
  - Gastrooesophageal reflux disease [None]
  - Dyspepsia [None]

NARRATIVE: CASE EVENT DATE: 201408
